FAERS Safety Report 18260024 (Version 2)
Quarter: 2021Q1

REPORT INFORMATION
  Report Type: Spontaneous
  Country: CN (occurrence: CN)
  Receive Date: 20200913
  Receipt Date: 20210311
  Transmission Date: 20210419
  Serious: Yes (Other)
  Sender: FDA-Public Use
  Company Number: CN-009507513-2009CHN002733

PATIENT
  Age: 90 Year
  Sex: Male

DRUGS (2)
  1. TIENAM [Suspect]
     Active Substance: CILASTATIN SODIUM\IMIPENEM
     Indication: INFECTION
     Dosage: 1G, TID, IVGTT
     Route: 041
     Dates: start: 20200802, end: 20200805
  2. SODIUM CHLORIDE. [Concomitant]
     Active Substance: SODIUM CHLORIDE
     Dosage: 100 MILLILITER, TID, IVGTT
     Dates: start: 20200802, end: 20200805

REACTIONS (6)
  - Mental disorder [Recovering/Resolving]
  - Agitation [Recovering/Resolving]
  - Suicidal ideation [Recovering/Resolving]
  - Negative thoughts [Recovering/Resolving]
  - Psychiatric symptom [Recovering/Resolving]
  - Euphoric mood [Recovering/Resolving]

NARRATIVE: CASE EVENT DATE: 202008
